FAERS Safety Report 10015144 (Version 2)
Quarter: 2014Q1

REPORT INFORMATION
  Report Type: Spontaneous
  Country: US (occurrence: US)
  Receive Date: 20140317
  Receipt Date: 20140317
  Transmission Date: 20141002
  Serious: No
  Sender: FDA-Public Use
  Company Number: US-GILEAD-2012-0057915

PATIENT
  Sex: Female

DRUGS (4)
  1. LETAIRIS [Suspect]
     Indication: PULMONARY HYPERTENSION
     Dosage: 5 MG, UNK
     Route: 048
     Dates: start: 20120618
  2. LETAIRIS [Suspect]
     Indication: MARFAN^S SYNDROME
  3. LETAIRIS [Suspect]
     Indication: HEART VALVE REPLACEMENT
  4. LETAIRIS [Suspect]
     Indication: MITRAL VALVE REPLACEMENT

REACTIONS (1)
  - Local swelling [Unknown]
